FAERS Safety Report 23985572 (Version 1)
Quarter: 2024Q2

REPORT INFORMATION
  Report Type: Spontaneous
  Country: US (occurrence: US)
  Receive Date: 20240618
  Receipt Date: 20240618
  Transmission Date: 20240716
  Serious: No
  Sender: FDA-Public Use
  Company Number: US-Nobelpharma America, LLC-NPA-2024-00992

PATIENT
  Sex: Female

DRUGS (6)
  1. HYFTOR [Suspect]
     Active Substance: SIROLIMUS
     Indication: Tuberous sclerosis complex
     Route: 003
     Dates: start: 20240514
  2. AFINITOR [Concomitant]
     Active Substance: EVEROLIMUS
  3. LAMOTRIGINE [Concomitant]
     Active Substance: LAMOTRIGINE
  4. MELATONIN [Concomitant]
     Active Substance: MELATONIN
     Route: 060
  5. Multivitamin/FL [Concomitant]
  6. PROBIOTICS NOS [Concomitant]
     Active Substance: PROBIOTICS NOS

REACTIONS (5)
  - Erythema [Unknown]
  - Dry skin [Unknown]
  - Skin tightness [Unknown]
  - Product dose omission issue [None]
  - Intentional product use issue [None]
